FAERS Safety Report 16135983 (Version 1)
Quarter: 2019Q1

REPORT INFORMATION
  Report Type: Spontaneous
  Country: FR (occurrence: FR)
  Receive Date: 20190329
  Receipt Date: 20190329
  Transmission Date: 20190418
  Serious: Yes (Hospitalization)
  Sender: FDA-Public Use
  Company Number: FR-ASTRAZENECA-2019SE46851

PATIENT
  Age: 27 Year
  Sex: Female

DRUGS (2)
  1. FASENRA [Suspect]
     Active Substance: BENRALIZUMAB
     Indication: ASTHMA
     Route: 058
  2. MEPOLIZUMAB [Concomitant]
     Active Substance: MEPOLIZUMAB

REACTIONS (1)
  - Asthma [Unknown]

NARRATIVE: CASE EVENT DATE: 201903
